FAERS Safety Report 21539884 (Version 1)
Quarter: 2022Q4

REPORT INFORMATION
  Report Type: Spontaneous
  Country: CN (occurrence: CN)
  Receive Date: 20221102
  Receipt Date: 20221102
  Transmission Date: 20230112
  Serious: Yes (Other)
  Sender: FDA-Public Use
  Company Number: CN-SA-SAC20221031001166

PATIENT
  Age: 74 Year
  Sex: Male
  Weight: 58 kg

DRUGS (1)
  1. OXALIPLATIN [Suspect]
     Active Substance: OXALIPLATIN
     Indication: Neoplasm
     Dosage: 125 MG, TOTAL
     Dates: start: 20221015, end: 20221015

REACTIONS (1)
  - Paralysis [Recovered/Resolved]

NARRATIVE: CASE EVENT DATE: 20221015
